FAERS Safety Report 7403540-6 (Version None)
Quarter: 2011Q2

REPORT INFORMATION
  Report Type: 
  Country: None (occurrence: None)
  Receive Date: 20110408
  Receipt Date: 20110329
  Transmission Date: 20111010
  Serious: Yes (Hospitalization, Disabling, Other)
  Sender: FDA-Public Use
  Company Number: US-MERCK-0902USA03923

PATIENT
  Age: 69 Year
  Sex: Female

DRUGS (4)
  1. FOSAMAX PLUS D [Suspect]
     Indication: OSTEOPENIA
     Route: 048
     Dates: start: 20000101, end: 20080415
  2. FOSAMAX [Suspect]
     Route: 048
     Dates: start: 19980601, end: 20000101
  3. FOSAMAX [Suspect]
     Route: 048
     Dates: start: 20000101
  4. FOSAMAX [Suspect]
     Indication: OSTEOPENIA
     Route: 048
     Dates: start: 20011201, end: 20080701

REACTIONS (30)
  - PAIN IN EXTREMITY [None]
  - JOINT EFFUSION [None]
  - DRUG HYPERSENSITIVITY [None]
  - ARTHRITIS [None]
  - ANAEMIA [None]
  - BONE DISORDER [None]
  - CARDIAC DISORDER [None]
  - ALLERGY TO ARTHROPOD STING [None]
  - MYALGIA [None]
  - OSTEOARTHRITIS [None]
  - TENDONITIS [None]
  - ANXIETY [None]
  - STRESS FRACTURE [None]
  - HYPERCHOLESTEROLAEMIA [None]
  - FOOT DEFORMITY [None]
  - OSTEOPOROSIS [None]
  - ARTHRALGIA [None]
  - SPINAL DISORDER [None]
  - SKIN PAPILLOMA [None]
  - DERMAL CYST [None]
  - FEMUR FRACTURE [None]
  - HYPERSENSITIVITY [None]
  - ARTHROPOD BITE [None]
  - ABNORMAL LOSS OF WEIGHT [None]
  - HYPERKERATOSIS [None]
  - FRACTURE DELAYED UNION [None]
  - EPICONDYLITIS [None]
  - LACERATION [None]
  - VERTIGO [None]
  - CHEST PAIN [None]
